FAERS Safety Report 19828168 (Version 1)
Quarter: 2021Q3

REPORT INFORMATION
  Report Type: Spontaneous
  Country: DE (occurrence: DE)
  Receive Date: 20210914
  Receipt Date: 20210914
  Transmission Date: 20211014
  Serious: Yes (Hospitalization)
  Sender: FDA-Public Use
  Company Number: DE-TEVA-2021-DE-1951507

PATIENT
  Age: 66 Year
  Sex: Male
  Weight: 55 kg

DRUGS (16)
  1. FLUOROURACIL. [Suspect]
     Active Substance: FLUOROURACIL
     Dosage: 400 MG, BOLUS,
     Route: 042
  2. BUPRENORPHIN [Concomitant]
     Active Substance: BUPRENORPHINE
     Dosage: 52.5 MCG / H, CHANGE EVERY 4 DAYS,
     Route: 062
  3. ACETYLSALICYLSAURE [Concomitant]
     Active Substance: ASPIRIN
     Dosage: 100 MILLIGRAM DAILY;  0?1?0?0,
     Route: 048
  4. FOLINIC ACID [Concomitant]
     Active Substance: LEUCOVORIN
     Dosage: 200 MG, IN 30MIN,
     Route: 042
  5. METAMIZOL [Concomitant]
     Active Substance: METAMIZOLE SODIUM
     Dosage: 8 DOSAGE FORMS DAILY; 500 MG, 2?2?2?2,
     Route: 048
  6. L?THYROX HEXAL 25MIKROGRAMM [Concomitant]
     Dosage: 25 MCG / WEEK, ACCORDING TO THE SCHEME,
     Route: 048
  7. FLUOROURACIL. [Suspect]
     Active Substance: FLUOROURACIL
     Dosage: 2400 MG, IN 48H,
     Route: 042
  8. METOPROLOL. [Concomitant]
     Active Substance: METOPROLOL
     Dosage: 95 MILLIGRAM DAILY; 1?0?1?0,
     Route: 048
  9. PREDNISOLON [Concomitant]
     Active Substance: PREDNISOLONE
     Dosage: 50 MG, SINGLE DOSE,
     Route: 042
  10. IRINOTECAN [Suspect]
     Active Substance: IRINOTECAN
     Dosage: 180 MG, IN 1H,
     Route: 042
  11. ATORVASTATIN [Concomitant]
     Active Substance: ATORVASTATIN
     Dosage: 80 MILLIGRAM DAILY;  0?0?1?0,
     Route: 048
  12. L?THYROX HEXAL 25MIKROGRAMM [Concomitant]
     Dosage: 50 MCG, ACCORDING TO THE SCHEME,
  13. NUTRIFLEX LIPID PERI 1,875L [Concomitant]
     Dosage: 1875 ML, OVERNIGHT,
     Route: 042
  14. ONDANSETRON [Concomitant]
     Active Substance: ONDANSETRON
     Dosage: 8 MG, SINGLE DOSE,
     Route: 042
  15. ATROPIN [Concomitant]
     Active Substance: ATROPINE
     Dosage: 0.5 AMPOULE, SINGLE DOSE,
     Route: 058
  16. OXYCODON [Concomitant]
     Active Substance: OXYCODONE
     Dosage: 20 MILLIGRAM DAILY;   1?0?1?0,
     Route: 048

REACTIONS (3)
  - Abdominal pain upper [Unknown]
  - Diarrhoea [Unknown]
  - Testicular pain [Unknown]
